FAERS Safety Report 14183474 (Version 2)
Quarter: 2017Q4

REPORT INFORMATION
  Report Type: Spontaneous
  Country: US (occurrence: US)
  Receive Date: 20171113
  Receipt Date: 20171126
  Transmission Date: 20180321
  Serious: Yes (Death, Hospitalization, Other)
  Sender: FDA-Public Use
  Company Number: US-INTERCEPT-PMOCA2017001357

PATIENT

DRUGS (2)
  1. OCALIVA [Suspect]
     Active Substance: OBETICHOLIC ACID
     Indication: BILIARY CIRRHOSIS PRIMARY
     Dosage: 5 MG, QW
     Route: 048
     Dates: start: 201707, end: 201709
  2. URSO [Concomitant]
     Active Substance: URSODIOL
     Indication: BILIARY CIRRHOSIS PRIMARY

REACTIONS (7)
  - Hepatic failure [Unknown]
  - International normalised ratio abnormal [Unknown]
  - Hepatorenal syndrome [Fatal]
  - Blood bilirubin increased [Unknown]
  - Blood creatinine increased [Unknown]
  - Jaundice [Unknown]
  - Malaise [Unknown]

NARRATIVE: CASE EVENT DATE: 2017
